FAERS Safety Report 10204589 (Version 1)
Quarter: 2014Q2

REPORT INFORMATION
  Report Type: Spontaneous
  Country: US (occurrence: None)
  Receive Date: 20140527
  Receipt Date: 20140527
  Transmission Date: 20141212
  Serious: Yes (Other)
  Sender: FDA-Public Use
  Company Number: None

PATIENT
  Age: 51 Year
  Sex: Male
  Weight: 68.95 kg

DRUGS (1)
  1. TIZANIDINE [Suspect]
     Indication: TORTICOLLIS
     Route: 048

REACTIONS (2)
  - Torticollis [None]
  - Condition aggravated [None]
